FAERS Safety Report 6522342-6 (Version None)
Quarter: 2009Q4

REPORT INFORMATION
  Report Type: 
  Country: None (occurrence: None)
  Receive Date: 20091222
  Receipt Date: 20091209
  Transmission Date: 20100525
  Serious: Yes (Death, Hospitalization, Other)
  Sender: FDA-Public Use
  Company Number: 091203-0001206

PATIENT
  Age: 24 Month
  Sex: Male
  Weight: 10.61 kg

DRUGS (19)
  1. SABRIL [Suspect]
     Indication: INFANTILE SPASMS
     Dosage: 1000 MG;BID;PO
     Route: 048
     Dates: end: 20091130
  2. PULMICORT [Concomitant]
  3. CAFFEINE [Concomitant]
  4. DIURIL [Concomitant]
  5. POLYSITR-K [Concomitant]
  6. FOSPHENYTOIN [Concomitant]
  7. KEPPRA [Concomitant]
  8. MAGNESIUM GLUTAMATE [Concomitant]
  9. REGLAN [Concomitant]
  10. MULTI-VITAMINS [Concomitant]
  11. OMEPRAZOLE [Concomitant]
  12. PHENOBARBITAL [Concomitant]
  13. ZOSYN [Concomitant]
  14. POTASSIUM CHLORIDE [Concomitant]
  15. ALBUTEROL [Concomitant]
  16. ACETAMINOPHEN [Concomitant]
  17. IBUPROFEN [Concomitant]
  18. MORPHINE [Concomitant]
  19. CIPROFLOXACIN [Concomitant]

REACTIONS (16)
  - BLOOD PH INCREASED [None]
  - CEREBRAL DYSGENESIS [None]
  - CEREBRAL VENTRICLE DILATATION [None]
  - EAR INFECTION [None]
  - ENCEPHALOPATHY [None]
  - HEART RATE INCREASED [None]
  - NO THERAPEUTIC RESPONSE [None]
  - PNEUMONIA [None]
  - PO2 [None]
  - PO2 INCREASED [None]
  - POSTURING [None]
  - RESPIRATORY FAILURE [None]
  - RHINORRHOEA [None]
  - STATUS EPILEPTICUS [None]
  - UNRESPONSIVE TO STIMULI [None]
  - URINARY TRACT INFECTION PSEUDOMONAL [None]
